FAERS Safety Report 12271019 (Version 1)
Quarter: 2016Q2

REPORT INFORMATION
  Report Type: Spontaneous
  Country: US (occurrence: US)
  Receive Date: 20160415
  Receipt Date: 20160415
  Transmission Date: 20160815
  Serious: Yes (Other)
  Sender: FDA-Public Use
  Company Number: US-TEVA-652750ACC

PATIENT
  Age: 38 Year
  Sex: Female
  Weight: 59.93 kg

DRUGS (2)
  1. LEVOTHYROXINE. [Concomitant]
     Active Substance: LEVOTHYROXINE
     Indication: HYPOTHYROIDISM
  2. PARAGARD T 380A [Suspect]
     Active Substance: COPPER
     Indication: CONTRACEPTION
     Dates: start: 20150915

REACTIONS (7)
  - Dysmenorrhoea [Not Recovered/Not Resolved]
  - Vaginal discharge [Recovered/Resolved]
  - Bacterial vaginosis [Recovered/Resolved]
  - Vaginal odour [Recovered/Resolved]
  - Menorrhagia [Not Recovered/Not Resolved]
  - Device dislocation [Not Recovered/Not Resolved]
  - Vaginal haemorrhage [Not Recovered/Not Resolved]

NARRATIVE: CASE EVENT DATE: 20160408
